FAERS Safety Report 26017533 (Version 2)
Quarter: 2025Q4

REPORT INFORMATION
  Report Type: Spontaneous
  Country: JP (occurrence: JP)
  Receive Date: 20251110
  Receipt Date: 20251113
  Transmission Date: 20260119
  Serious: Yes (Hospitalization, Other)
  Sender: SANOFI AVENTIS
  Company Number: JP-SA-2025SA328419

PATIENT
  Age: 57 Year
  Sex: Female
  Weight: 40 kg

DRUGS (1)
  1. TAXOTERE [Suspect]
     Active Substance: DOCETAXEL
     Indication: Product used for unknown indication
     Dosage: UNK
     Route: 041

REACTIONS (6)
  - Osteonecrosis of jaw [Recovering/Resolving]
  - Condition aggravated [Recovering/Resolving]
  - Hypophagia [Recovering/Resolving]
  - Trigeminal neuralgia [Recovering/Resolving]
  - Cerebrospinal fluid leakage [Recovering/Resolving]
  - Pain [Recovering/Resolving]
